FAERS Safety Report 5734209-1 (Version None)
Quarter: 2008Q2

REPORT INFORMATION
  Report Type: 
  Country: None (occurrence: None)
  Receive Date: 20080510
  Receipt Date: 20080508
  Transmission Date: 20081010
  Serious: Yes (Hospitalization, Other)
  Sender: FDA-Public Use
  Company Number: US-ALLERGAN-0801883US

PATIENT
  Sex: Female
  Weight: 49.887 kg

DRUGS (8)
  1. BOTOX [Suspect]
     Indication: MIGRAINE
     Dosage: 100 UNITS, SINGLE
     Route: 030
     Dates: start: 20071113, end: 20071113
  2. BOTOX [Suspect]
     Indication: NECK PAIN
     Dosage: 100 UNITS, SINGLE
     Route: 030
     Dates: start: 20070501, end: 20070501
  3. BOTOX [Suspect]
     Dosage: 100 UNITS, SINGLE
     Route: 030
     Dates: start: 20070201, end: 20070201
  4. BOTOX [Suspect]
     Dosage: 100 UNITS, SINGLE
     Route: 030
     Dates: start: 20061101, end: 20061101
  5. BOTOX [Suspect]
     Dosage: 100 UNITS, SINGLE
     Route: 030
     Dates: start: 20060801, end: 20060801
  6. BOTOX [Suspect]
     Dosage: 100 UNITS, SINGLE
     Route: 030
     Dates: start: 20060501, end: 20060501
  7. BOTOX [Suspect]
     Dosage: 100 UNITS, SINGLE
     Route: 030
     Dates: start: 20060201, end: 20060201
  8. BOTOX [Suspect]
     Dosage: 100 UNITS, SINGLE
     Route: 030
     Dates: start: 20051101, end: 20051101

REACTIONS (1)
  - PNEUMONIA BACTERIAL [None]
